FAERS Safety Report 8838312 (Version 2)
Quarter: 2012Q4

REPORT INFORMATION
  Report Type: 
  Country: US (occurrence: US)
  Receive Date: 20121012
  Receipt Date: 20121018
  Transmission Date: 20130627
  Serious: No
  Sender: FDA-Public Use
  Company Number: US-PFIZER INC-2012252353

PATIENT
  Age: 58 Year
  Sex: Female
  Weight: 63.49 kg

DRUGS (5)
  1. LYRICA [Suspect]
     Indication: PAIN IN EXTREMITY
     Dosage: 75 mg, 3x/day
     Route: 048
     Dates: start: 2007
  2. LYRICA [Suspect]
     Dosage: 150 mg, 2x/day
     Route: 048
  3. LYRICA [Suspect]
     Dosage: 50 mg, UNK
     Route: 048
  4. LISINOPRIL [Concomitant]
     Indication: HYPERTENSION
     Dosage: 2.5 mg, 2x/day
  5. CARVEDILOL [Concomitant]
     Indication: HYPERTENSION
     Dosage: 6.25 mg, 2x/day

REACTIONS (6)
  - Drug dispensing error [Unknown]
  - Incorrect dose administered [Unknown]
  - Product commingling [Unknown]
  - Drug ineffective [Unknown]
  - Weight increased [Unknown]
  - Pain [Unknown]
